FAERS Safety Report 8262562-6 (Version None)
Quarter: 2012Q2

REPORT INFORMATION
  Report Type: 
  Country: None (occurrence: None)
  Receive Date: 20120405
  Receipt Date: 20120328
  Transmission Date: 20120825
  Serious: Yes (Other)
  Sender: FDA-Public Use
  Company Number: BR-JNJFOC-20120314772

PATIENT
  Age: 6 Year
  Sex: Male
  Weight: 19 kg

DRUGS (4)
  1. RISPERDAL [Suspect]
     Dosage: FEB
     Route: 048
     Dates: start: 20120201, end: 20120301
  2. RISPERDAL [Suspect]
     Dosage: 12. 30 PM AND 18 PM
     Route: 048
     Dates: start: 20100101, end: 20120201
  3. RISPERDAL [Suspect]
     Indication: ASPERGER'S DISORDER
     Dosage: MAR
     Route: 048
     Dates: start: 20120301
  4. PAROXETINE [Interacting]
     Indication: ANTIDEPRESSANT THERAPY
     Route: 065
     Dates: start: 20120201

REACTIONS (2)
  - ASPERGER'S DISORDER [None]
  - DRUG INTERACTION [None]
